FAERS Safety Report 5249766-1 (Version None)
Quarter: 2007Q1

REPORT INFORMATION
  Report Type: 
  Country: None (occurrence: None)
  Receive Date: 20070228
  Receipt Date: 20061109
  Transmission Date: 20070707
  Serious: Yes (Other)
  Sender: FDA-Public Use
  Company Number: US-GLAXOSMITHKLINE-A0626889A

PATIENT
  Age: 38 Year
  Sex: Male

DRUGS (2)
  1. IMITREX [Suspect]
     Indication: CLUSTER HEADACHE
     Dosage: 6MG VARIABLE DOSE
     Route: 058
  2. UNKNOWN [Concomitant]

REACTIONS (1)
  - CHEST PAIN [None]
